FAERS Safety Report 22239206 (Version 2)
Quarter: 2023Q2

REPORT INFORMATION
  Report Type: Spontaneous
  Country: US (occurrence: BA)
  Receive Date: 20230421
  Receipt Date: 20230623
  Transmission Date: 20230722
  Serious: No
  Sender: FDA-Public Use
  Company Number: US-009507513-2304USA005036

PATIENT
  Age: 70 Year
  Sex: Female

DRUGS (3)
  1. KEYTRUDA [Suspect]
     Active Substance: PEMBROLIZUMAB
     Indication: Triple negative breast cancer
  2. CARBOPLATIN [Suspect]
     Active Substance: CARBOPLATIN
  3. PACLITAXEL [Suspect]
     Active Substance: PACLITAXEL

REACTIONS (1)
  - Laboratory test abnormal [Unknown]

NARRATIVE: CASE EVENT DATE: 20230101
